FAERS Safety Report 8984218 (Version 1)
Quarter: 2012Q4

REPORT INFORMATION
  Report Type: Spontaneous
  Country: GB (occurrence: None)
  Receive Date: 20121214
  Receipt Date: 20121214
  Transmission Date: 20130627
  Serious: Yes (Death, Other)
  Sender: FDA-Public Use
  Company Number: 2012-01753

PATIENT
  Age: 75 Year
  Sex: Male
  Weight: 64.1 kg

DRUGS (34)
  1. SIMVASTATIN [Suspect]
     Indication: HYPERCHOLESTEROLEMIA
     Route: 048
     Dates: start: 20110704, end: 20121022
  2. MEROPENEM [Suspect]
     Indication: ESCHERICHIA URINARY TRACT INFECTION
     Route: 042
     Dates: start: 20121021, end: 20121025
  3. AMLODIPINE [Concomitant]
  4. ASCORBIC ACID [Concomitant]
  5. CLARITHROMYCIN [Concomitant]
  6. COLCHICINE [Concomitant]
  7. CYCLIZINE [Concomitant]
  8. DALTEPARIN (DALTEPARIN SODIUM) [Concomitant]
  9. DARBEPOETIN ALFA [Concomitant]
  10. DOXAZOSIN [Concomitant]
  11. FINASTERIDE [Concomitant]
  12. FOLIC ACID [Concomitant]
  13. FRUSEMIDE [Concomitant]
  14. HUMULIN [Concomitant]
  15. HYDROCORTISONE [Concomitant]
  16. HYOSCINE (HYOSCINE BUTYLBROMIDE) [Concomitant]
  17. IPRATROPIUM (IPRATROPIUM BROMIDE) [Concomitant]
  18. LACTULOSE [Concomitant]
  19. METOCLOPRAMIDE [Concomitant]
  20. MOVICOL [Concomitant]
  21. NEFOPAM [Concomitant]
  22. NICORANDIL [Concomitant]
  23. OMEGA-3-ACID ETHYL ESTERS 90% + OMEGA-3 POLYUNSATURATES 85% CONCENTRATE (OMACOR) [Concomitant]
  24. PARACETAMOL [Concomitant]
  25. PARACETAMOL [Suspect]
  26. PICOLAX [Concomitant]
  27. RANITIDINE [Concomitant]
  28. SALBUTAMOL [Concomitant]
  29. SENNA [Concomitant]
  30. SEVELAMER [Concomitant]
  31. DOCUSATE (SODIUM DOCUSATE) [Concomitant]
  32. TRIMETHOPRIM [Concomitant]
  33. NICOTINAMIDE + PYRIDOXINE HYDROCHLORIDE + RIBOFLAVIN + THIAMINE HYDROCHLORIDE (VITAMIN B COMPLES STRONG) [Concomitant]
  34. ZOPICLONE [Concomitant]

REACTIONS (3)
  - Myopathy [None]
  - Myositis [None]
  - Drug interaction [None]
